FAERS Safety Report 8776816 (Version 2)
Quarter: 2012Q4

REPORT INFORMATION
  Report Type: 
  Country: JP (occurrence: JP)
  Receive Date: 20120910
  Receipt Date: 20120910
  Transmission Date: 20130627
  Serious: Yes (Hospitalization)
  Sender: FDA-Public Use
  Company Number: PHHY2012JP073398

PATIENT
  Age: 67 Year
  Sex: Male
  Weight: 47 kg

DRUGS (2)
  1. TASIGNA [Suspect]
     Indication: CHRONIC MYELOID LEUKAEMIA
     Dosage: 600 mg, daily
     Route: 048
     Dates: start: 20120413, end: 20120724
  2. PREDNISOLONE [Concomitant]
     Dosage: 4 mg, UNK
     Route: 048
     Dates: start: 20110308

REACTIONS (2)
  - Diabetes mellitus [Not Recovered/Not Resolved]
  - Concomitant disease aggravated [Not Recovered/Not Resolved]
